FAERS Safety Report 11506853 (Version 1)
Quarter: 2015Q3

REPORT INFORMATION
  Report Type: Spontaneous
  Country: US (occurrence: None)
  Receive Date: 20150914
  Receipt Date: 20150914
  Transmission Date: 20151125
  Serious: Yes (Other)
  Sender: FDA-Public Use
  Company Number: None

PATIENT
  Age: 60 Year
  Sex: Male
  Weight: 108.86 kg

DRUGS (2)
  1. INVOKANA [Suspect]
     Active Substance: CANAGLIFLOZIN
     Indication: BLOOD GLUCOSE ABNORMAL
     Dosage: 1 PILL
     Route: 048
     Dates: start: 20150801, end: 20150904
  2. BLOOD PRESSURE MEDICINE [Concomitant]
     Active Substance: UNSPECIFIED INGREDIENT

REACTIONS (10)
  - Nausea [None]
  - Myalgia [None]
  - Dyspnoea [None]
  - Therapy cessation [None]
  - Thirst [None]
  - Chest pain [None]
  - Asthenia [None]
  - Dizziness [None]
  - Blood urine present [None]
  - Renal pain [None]

NARRATIVE: CASE EVENT DATE: 20150904
